FAERS Safety Report 7668705-7 (Version None)
Quarter: 2011Q3

REPORT INFORMATION
  Report Type: 
  Country: None (occurrence: None)
  Receive Date: 20110808
  Receipt Date: 20110728
  Transmission Date: 20111222
  Serious: Yes (Other)
  Sender: FDA-Public Use
  Company Number: JP-SHIRE-ALL1-2011-02063

PATIENT
  Age: 66 Year
  Sex: Male

DRUGS (12)
  1. ZETIA [Concomitant]
     Indication: PRODUCT USED FOR UNKNOWN INDICATION
     Dosage: 10 MG, UNKNOWN
     Route: 048
     Dates: start: 20100610
  2. ADALAT [Concomitant]
     Indication: HYPERTENSION
     Dosage: 20 MG, UNKNOWN
     Route: 048
     Dates: start: 20100610, end: 20110609
  3. WELL BI [Concomitant]
     Indication: HYPERTENSION
     Dosage: 5 MG, UNKNOWN
     Route: 048
     Dates: start: 20101113
  4. PRECIPITATED CALCIUM CARBONATE [Concomitant]
     Indication: HYPERPHOSPHATAEMIA
     Dosage: 1500 MG, UNKNOWN
     Route: 048
     Dates: start: 20100610, end: 20110602
  5. FOSRENOL [Suspect]
     Indication: HYPERPHOSPHATAEMIA
     Dosage: 750 MG, UNKNOWN, TOTAL DAILY DOSE
     Route: 048
     Dates: start: 20110526, end: 20110611
  6. LASIX [Concomitant]
     Indication: HYPERTENSION
     Dosage: 120 MG, UNKNOWN
     Route: 048
     Dates: start: 20100610
  7. ASPIRIN [Concomitant]
     Indication: MYOCARDIAL ISCHAEMIA
     Dosage: 200 MG, UNKNOWN
     Route: 048
     Dates: start: 20101113
  8. ALFAROL [Concomitant]
     Indication: HYPERPARATHYROIDISM SECONDARY
     Dosage: 0.5 ?G, UNKNOWN
     Route: 048
     Dates: start: 20101113
  9. PLAVIX [Concomitant]
     Indication: MYOCARDIAL ISCHAEMIA
     Dosage: 75 MG, UNKNOWN
     Route: 048
     Dates: start: 20101113
  10. HUMALOG [Concomitant]
     Indication: DIABETES MELLITUS
     Dosage: 12 IU, UNKNOWN
     Route: 058
     Dates: start: 20110409
  11. LENDORMIN [Concomitant]
     Indication: INSOMNIA
     Dosage: 1 DF, AS REQ'D
     Route: 048
     Dates: start: 20110514
  12. NESPO [Concomitant]
     Indication: NEPHROGENIC ANAEMIA
     Dosage: 20 ?G, 1X/WEEK
     Route: 042
     Dates: start: 20101125

REACTIONS (1)
  - HEPATIC FUNCTION ABNORMAL [None]
